FAERS Safety Report 21409154 (Version 5)
Quarter: 2023Q4

REPORT INFORMATION
  Report Type: Spontaneous
  Country: US (occurrence: US)
  Receive Date: 20221004
  Receipt Date: 20231227
  Transmission Date: 20240110
  Serious: Yes (Other)
  Sender: FDA-Public Use
  Company Number: US-SANOFI-01302468

PATIENT
  Age: 76 Year
  Sex: Female

DRUGS (2)
  1. TOUJEO [Suspect]
     Active Substance: INSULIN GLARGINE
     Indication: Type 2 diabetes mellitus
     Dosage: 50 U, QD
  2. TOUJEO [Suspect]
     Active Substance: INSULIN GLARGINE
     Dosage: 52 U, QD

REACTIONS (5)
  - Blindness [Unknown]
  - Peripheral swelling [Unknown]
  - Vision blurred [Unknown]
  - Injection site pain [Unknown]
  - Device defective [Unknown]
